FAERS Safety Report 13355363 (Version 1)
Quarter: 2017Q1

REPORT INFORMATION
  Report Type: Spontaneous
  Country: US (occurrence: US)
  Receive Date: 20170321
  Receipt Date: 20170321
  Transmission Date: 20170429
  Serious: Yes (Other)
  Sender: FDA-Public Use
  Company Number: US-PFIZER INC-2017111587

PATIENT
  Sex: Female

DRUGS (1)
  1. XELJANZ XR [Suspect]
     Active Substance: TOFACITINIB CITRATE
     Dosage: 11 MG, UNK

REACTIONS (8)
  - Deep vein thrombosis [Unknown]
  - Musculoskeletal stiffness [Unknown]
  - Back pain [Unknown]
  - Thrombophlebitis septic [Unknown]
  - Arthralgia [Unknown]
  - Pustular psoriasis [Recovered/Resolved]
  - Peripheral swelling [Unknown]
  - Joint range of motion decreased [Unknown]
